FAERS Safety Report 20092211 (Version 3)
Quarter: 2021Q4

REPORT INFORMATION
  Report Type: Spontaneous
  Country: ES (occurrence: ES)
  Receive Date: 20211119
  Receipt Date: 20211206
  Transmission Date: 20220304
  Serious: Yes (Hospitalization, Other)
  Sender: FDA-Public Use
  Company Number: ES-SA-SAC20211117000951

PATIENT
  Age: 84 Year
  Sex: Female
  Weight: 55 kg

DRUGS (4)
  1. LANTUS SOLOSTAR [Suspect]
     Active Substance: INSULIN GLARGINE
     Indication: Type 2 diabetes mellitus
     Dosage: 40 IU, QD
     Route: 058
     Dates: start: 20210107, end: 2021
  2. LANTUS SOLOSTAR [Suspect]
     Active Substance: INSULIN GLARGINE
     Dosage: 20 IU, QD (REDUCED TO 20 UNITS)
     Route: 058
     Dates: start: 20210701, end: 20211124
  3. METFORMIN [Concomitant]
     Active Substance: METFORMIN HYDROCHLORIDE
     Indication: Type 2 diabetes mellitus
     Dosage: 0-1-0.5, BID
     Route: 048
  4. JARDIANCE [Concomitant]
     Active Substance: EMPAGLIFLOZIN
     Indication: Type 2 diabetes mellitus
     Dosage: 1 DF, QD
     Route: 048

REACTIONS (10)
  - Hypervolaemia [Recovering/Resolving]
  - Respiratory failure [Unknown]
  - Nervousness [Unknown]
  - Fear [Unknown]
  - Heart valve stenosis [Unknown]
  - Weight increased [Unknown]
  - Fatigue [Recovered/Resolved]
  - Feeling abnormal [Recovered/Resolved]
  - Hypoglycaemia [Recovered/Resolved]
  - Lack of injection site rotation [Unknown]

NARRATIVE: CASE EVENT DATE: 20210101
